FAERS Safety Report 7353681-7 (Version None)
Quarter: 2011Q1

REPORT INFORMATION
  Report Type: 
  Country: None (occurrence: None)
  Receive Date: 20110303
  Receipt Date: 20101221
  Transmission Date: 20110831
  Serious: Yes (Hospitalization)
  Sender: FDA-Public Use
  Company Number: US-005755

PATIENT
  Age: 85 Year
  Sex: Female
  Weight: 63 kg

DRUGS (3)
  1. ISOVUE-300 [Suspect]
     Indication: CORONARY ANGIOPLASTY
     Dosage: 60ML ONCE INTRA-ARTERIAL
     Route: 013
     Dates: start: 20101220, end: 20101220
  2. ISOVUE-300 [Suspect]
     Indication: CORONARY ARTERIAL STENT INSERTION
     Dosage: 60ML ONCE INTRA-ARTERIAL
     Route: 013
     Dates: start: 20101220, end: 20101220
  3. ISOVUE-300 [Suspect]
     Indication: CORONARY ARTERY DISEASE
     Dosage: 60ML ONCE INTRA-ARTERIAL
     Route: 013
     Dates: start: 20101220, end: 20101220

REACTIONS (1)
  - ANAPHYLACTOID REACTION [None]
